FAERS Safety Report 4307091-7 (Version None)
Quarter: 2004Q1

REPORT INFORMATION
  Report Type: 
  Country: None (occurrence: None)
  Receive Date: 20040225
  Receipt Date: 20040209
  Transmission Date: 20041129
  Serious: Yes (Hospitalization)
  Sender: FDA-Public Use
  Company Number: USA040156496

PATIENT
  Age: 64 Year
  Sex: Female

DRUGS (4)
  1. FORTEO [Suspect]
     Dates: start: 20040109, end: 20040111
  2. LIPITOR [Concomitant]
  3. REMERON [Concomitant]
  4. RISPERDAL [Concomitant]

REACTIONS (3)
  - ANGINA PECTORIS [None]
  - DYSPHAGIA [None]
  - DYSPNOEA [None]
